FAERS Safety Report 8578220-4 (Version None)
Quarter: 2012Q3

REPORT INFORMATION
  Report Type: 
  Country: None (occurrence: None)
  Receive Date: 20120808
  Receipt Date: 20120803
  Transmission Date: 20120928
  Serious: No
  Sender: FDA-Public Use
  Company Number: US-PFIZER INC-2012174004

PATIENT
  Age: 66 Year
  Sex: Female
  Weight: 68.027 kg

DRUGS (6)
  1. CELEBREX [Suspect]
     Indication: ARTHRITIS
     Dosage: 200 MG, 1X/DAY
     Route: 048
     Dates: start: 20110101, end: 20110101
  2. CELEBREX [Suspect]
     Indication: PAIN IN EXTREMITY
  3. MIDODRINE [Concomitant]
     Indication: ORTHOSTATIC HYPOTENSION
     Dosage: UNK, 3X/DAY
  4. PERCOCET [Concomitant]
     Indication: SPINAL PAIN
     Dosage: UNK
  5. LYRICA [Concomitant]
     Dosage: UNK
  6. CELEBREX [Suspect]
     Indication: SPINAL DISORDER

REACTIONS (2)
  - ABDOMINAL DISCOMFORT [None]
  - ABDOMINAL PAIN UPPER [None]
